FAERS Safety Report 5054776-3 (Version None)
Quarter: 2006Q2

REPORT INFORMATION
  Report Type: 
  Country: None (occurrence: None)
  Receive Date: 20060614
  Receipt Date: 20060322
  Transmission Date: 20061013
  Serious: No
  Sender: FDA-Public Use
  Company Number: US200603005769

PATIENT
  Age: 77 Year
  Sex: Male

DRUGS (4)
  1. CIALIS [Suspect]
     Indication: ERECTILE DYSFUNCTION
     Dosage: 20 MG
     Dates: start: 20060318
  2. TRIAMTERENE (TRIAMTERENE) [Concomitant]
  3. ASPIRIN [Concomitant]
  4. METFORMIN (METFORMIN) [Concomitant]

REACTIONS (1)
  - THERAPEUTIC RESPONSE DECREASED [None]
